FAERS Safety Report 4829374-4 (Version None)
Quarter: 2005Q4

REPORT INFORMATION
  Report Type: 
  Country: None (occurrence: None)
  Receive Date: 20051116
  Receipt Date: 20051108
  Transmission Date: 20060501
  Serious: Yes (Hospitalization)
  Sender: FDA-Public Use
  Company Number: PHBS2005JP16592

PATIENT
  Age: 65 Year
  Sex: Female

DRUGS (1)
  1. BROMOCRIPTINE MESYLATE [Suspect]
     Indication: PITUITARY TUMOUR BENIGN

REACTIONS (9)
  - ABASIA [None]
  - AREFLEXIA [None]
  - BONE EROSION [None]
  - HYPOAESTHESIA [None]
  - MUSCULAR WEAKNESS [None]
  - NERVE ROOT COMPRESSION [None]
  - NEURILEMMOMA BENIGN [None]
  - PARAESTHESIA [None]
  - SURGERY [None]
